FAERS Safety Report 12098014 (Version 1)
Quarter: 2016Q1

REPORT INFORMATION
  Report Type: Spontaneous
  Country: US (occurrence: US)
  Receive Date: 20160221
  Receipt Date: 20160221
  Transmission Date: 20160526
  Serious: No
  Sender: FDA-Public Use
  Company Number: US-BIOGEN-2016BI00188566

PATIENT
  Sex: Female

DRUGS (1)
  1. TYSABRI [Suspect]
     Active Substance: NATALIZUMAB
     Indication: MULTIPLE SCLEROSIS
     Dates: start: 20150609

REACTIONS (6)
  - Drug administered to patient of inappropriate age [Unknown]
  - Fatigue [Unknown]
  - Hypersomnia [Unknown]
  - Irritability [Unknown]
  - Asthenia [Unknown]
  - Arthralgia [Unknown]
